FAERS Safety Report 22180622 (Version 1)
Quarter: 2023Q2

REPORT INFORMATION
  Report Type: Spontaneous
  Country: CN (occurrence: CN)
  Receive Date: 20230406
  Receipt Date: 20230406
  Transmission Date: 20230721
  Serious: Yes (Other)
  Sender: FDA-Public Use
  Company Number: None

PATIENT
  Age: 34 Year
  Sex: Male
  Weight: 57 kg

DRUGS (9)
  1. CYCLOPHOSPHAMIDE [Suspect]
     Active Substance: CYCLOPHOSPHAMIDE
     Indication: Lymphoma
     Dosage: 1.2 G, QD, D1, DILUTED WITH 500 ML SODIUM CHLORIDE AS A PART OF RCHOP
     Route: 041
     Dates: start: 20230207, end: 20230209
  2. SODIUM CHLORIDE [Suspect]
     Active Substance: SODIUM CHLORIDE
     Indication: Medication dilution
     Dosage: 500 ML, QD, D1 USED TO DILUTE 1.2 G CYCLOPHOSPHAMIDE AS A PART OF RCHOP
     Route: 041
     Dates: start: 20230207, end: 20230209
  3. SODIUM CHLORIDE [Suspect]
     Active Substance: SODIUM CHLORIDE
     Dosage: 500 ML, QD, D0, USED TO DILUTE 650 MG RITUXIMAB AS A PART OF RCHOP
     Route: 041
     Dates: start: 20230206, end: 20230206
  4. DEXTROSE [Suspect]
     Active Substance: DEXTROSE\DEXTROSE MONOHYDRATE
     Indication: Medication dilution
     Dosage: 250 ML, QD, D1, USED TO DILUTE 82 MG DOXORUBICIN HYDROCHLORIDE AS A PART OF RCHOP
     Route: 041
     Dates: start: 20230207, end: 20230209
  5. RITUXIMAB [Suspect]
     Active Substance: RITUXIMAB
     Indication: Lymphoma
     Dosage: 650 MG, QD, D0, DILUTED WITH 500 ML SODIUM CHLORIDE AS A PART OF RCHOP
     Route: 041
     Dates: start: 20230207, end: 20230207
  6. DOXORUBICIN HYDROCHLORIDE [Suspect]
     Active Substance: DOXORUBICIN HYDROCHLORIDE
     Indication: Lymphoma
     Dosage: 82 MG, QD, D1 DILUTED WITH 250 ML GLUCOSE SOLUTION AS A PART OF RCHOP
     Route: 041
     Dates: start: 20230207, end: 20230209
  7. VINCRISTINE SULFATE [Suspect]
     Active Substance: VINCRISTINE SULFATE
     Indication: Lymphoma
     Dosage: 2 MG, QD, D1 DILUTED WITH 20 ML SODIUM CHLORIDE AS A PART OF RCHOP
     Route: 042
     Dates: start: 20230207, end: 20230209
  8. SODIUM CHLORIDE [Suspect]
     Active Substance: SODIUM CHLORIDE
     Indication: Medication dilution
     Dosage: 20 ML, QD, D1 USED TO DILUTE 2 MG VINCRISTINE AS A PART OF RCHOP
     Route: 041
     Dates: start: 20230207, end: 20230209
  9. PREDNISONE ACETATE [Suspect]
     Active Substance: PREDNISONE ACETATE
     Indication: Lymphoma
     Dosage: 100 MG, D1-5 AS A PART OF RCHOP
     Route: 065
     Dates: start: 20230207, end: 20230211

REACTIONS (3)
  - White blood cell count decreased [Recovering/Resolving]
  - Neutrophil count decreased [Recovering/Resolving]
  - Myelosuppression [Recovering/Resolving]

NARRATIVE: CASE EVENT DATE: 20230301
